FAERS Safety Report 5079695-8 (Version None)
Quarter: 2006Q3

REPORT INFORMATION
  Report Type: 
  Country: None (occurrence: None)
  Receive Date: 20060808
  Receipt Date: 20060725
  Transmission Date: 20061208
  Serious: Yes (Death, Life-Threatening, Hospitalization)
  Sender: FDA-Public Use
  Company Number: R301639-PAP-USA

PATIENT
  Age: 82 Year
  Sex: Male
  Weight: 70 kg

DRUGS (9)
  1. ACIPHEX [Suspect]
     Indication: GASTROOESOPHAGEAL REFLUX DISEASE
     Dosage: 20 MG, ORAL
     Route: 048
     Dates: start: 20050301, end: 20060530
  2. COMBIVENT [Concomitant]
  3. CYANOCOBALAMIN [Concomitant]
  4. PLAVIX [Concomitant]
  5. ARICEPT [Concomitant]
  6. NAMENDA [Concomitant]
  7. WELLBUTRIN [Concomitant]
  8. LESCOL [Concomitant]
  9. NITROGLYCERIN [Concomitant]

REACTIONS (1)
  - ACUTE RESPIRATORY FAILURE [None]
